FAERS Safety Report 17277233 (Version 1)
Quarter: 2020Q1

REPORT INFORMATION
  Report Type: Spontaneous
  Country: CN (occurrence: CN)
  Receive Date: 20200116
  Receipt Date: 20200116
  Transmission Date: 20200409
  Serious: Yes (Hospitalization)
  Sender: FDA-Public Use
  Company Number: CN-MALLINCKRODT-T202000206

PATIENT
  Age: 65 Year
  Sex: Female
  Weight: 47 kg

DRUGS (3)
  1. INDOMETHACIN. [Suspect]
     Active Substance: INDOMETHACIN
     Indication: PYREXIA
  2. OXYCODONE/ACETAMINOPHEN [Suspect]
     Active Substance: ACETAMINOPHEN\OXYCODONE HYDROCHLORIDE
     Indication: ANALGESIC THERAPY
     Dosage: 5 MILLIGRAM, QD
     Route: 048
     Dates: start: 20200104, end: 20200105
  3. INDOMETHACIN. [Suspect]
     Active Substance: INDOMETHACIN
     Indication: ANALGESIC THERAPY
     Dosage: 25 MILLIGRAM, BID
     Route: 048
     Dates: start: 20200107, end: 20200110

REACTIONS (1)
  - Leukopenia [Unknown]

NARRATIVE: CASE EVENT DATE: 20200109
